FAERS Safety Report 12751379 (Version 1)
Quarter: 2016Q3

REPORT INFORMATION
  Report Type: Spontaneous
  Country: US (occurrence: US)
  Receive Date: 20160915
  Receipt Date: 20160915
  Transmission Date: 20161109
  Serious: No
  Sender: FDA-Public Use
  Company Number: US-BION-20160270

PATIENT
  Weight: 68.49 kg

DRUGS (4)
  1. UNISOM WITH NO BENADRYL [Concomitant]
  2. ARMOUR THYROID [Concomitant]
     Active Substance: THYROID, PORCINE
  3. NIACINAMIDE [Concomitant]
     Active Substance: NIACINAMIDE
  4. PROGESTERONE CAPSULES [Suspect]
     Active Substance: PROGESTERONE
     Indication: HORMONE THERAPY
     Dosage: 1 DSF QID EVERY NIGHT
     Route: 048
     Dates: start: 20160515

REACTIONS (5)
  - Pruritus [None]
  - Urticaria [Not Recovered/Not Resolved]
  - Weight increased [Not Recovered/Not Resolved]
  - Confusional state [Not Recovered/Not Resolved]
  - Abdominal distension [Not Recovered/Not Resolved]
